FAERS Safety Report 4614700-1 (Version None)
Quarter: 2005Q1

REPORT INFORMATION
  Report Type: 
  Country: None (occurrence: None)
  Receive Date: 20050322
  Receipt Date: 20050310
  Transmission Date: 20050727
  Serious: Yes (Other)
  Sender: FDA-Public Use
  Company Number: US-JNJFOC-20050302929

PATIENT
  Sex: Female
  Weight: 72.58 kg

DRUGS (6)
  1. REMICADE [Suspect]
     Indication: CROHN'S DISEASE
     Dosage: 4 VIALS
     Route: 042
  2. CELEBREX [Concomitant]
  3. 6MP [Concomitant]
  4. ASACOL [Concomitant]
  5. CIPROFLOXACIN HCL [Concomitant]
  6. FLAGYL [Concomitant]

REACTIONS (1)
  - BASAL CELL CARCINOMA [None]
